FAERS Safety Report 7867813-5 (Version None)
Quarter: 2011Q4

REPORT INFORMATION
  Report Type: 
  Country: None (occurrence: None)
  Receive Date: 20111028
  Receipt Date: 20111021
  Transmission Date: 20120403
  Serious: Yes (Hospitalization)
  Sender: FDA-Public Use
  Company Number: US-US-EMD SERONO, INC.-7091624

PATIENT
  Sex: Female

DRUGS (4)
  1. STEROIDS [Concomitant]
  2. REBIF [Suspect]
     Indication: PRODUCT USED FOR UNKNOWN INDICATION
     Route: 058
     Dates: start: 20051212
  3. AMANTADINE HCL [Concomitant]
  4. DEPAKOTE [Concomitant]
     Dates: start: 20080101

REACTIONS (3)
  - FATIGUE [None]
  - GAIT DISTURBANCE [None]
  - CELLULITIS [None]
